FAERS Safety Report 10504744 (Version 1)
Quarter: 2014Q3

REPORT INFORMATION
  Report Type: Spontaneous
  Country: US (occurrence: None)
  Receive Date: 20140926
  Receipt Date: 20140926
  Transmission Date: 20150326
  Serious: Yes (Hospitalization, Other)
  Sender: FDA-Public Use
  Company Number: 2014070021

PATIENT
  Sex: Male
  Weight: 86.18 kg

DRUGS (1)
  1. FELBAMATE. [Suspect]
     Active Substance: FELBAMATE
     Indication: CONVULSION
     Dosage: 20 YEARS PRIOR TO REPORT - ONGOING 3000 MG (600 MG, 5 IN 1 D), ORAL
     Route: 048

REACTIONS (4)
  - Drug dose omission [None]
  - Convulsion [None]
  - Condition aggravated [None]
  - Drug effect incomplete [None]
